FAERS Safety Report 7597071-0 (Version None)
Quarter: 2011Q3

REPORT INFORMATION
  Report Type: 
  Country: None (occurrence: None)
  Receive Date: 20110708
  Receipt Date: 20110705
  Transmission Date: 20111222
  Serious: Yes (Life-Threatening, Hospitalization, Disabling, Congenital Anomaly, Other)
  Sender: FDA-Public Use
  Company Number: US-PFIZER INC-2007095328

PATIENT
  Sex: Female
  Weight: 3 kg

DRUGS (4)
  1. PRENATAL VITAMINS [Concomitant]
  2. ANCEF [Concomitant]
     Route: 064
  3. ZOLOFT [Suspect]
     Indication: PANIC DISORDER
     Dosage: 50 MG, 1X/DAY
     Route: 064
     Dates: start: 20040412
  4. SODIUM CHLORIDE [Concomitant]
     Route: 064

REACTIONS (7)
  - CARDIAC MURMUR [None]
  - GASTROOESOPHAGEAL REFLUX DISEASE [None]
  - CARDIAC FAILURE [None]
  - CARDIOMEGALY [None]
  - AORTIC VALVE STENOSIS [None]
  - MATERNAL EXPOSURE DURING PREGNANCY [None]
  - PNEUMONIA [None]
